FAERS Safety Report 10906091 (Version 1)
Quarter: 2015Q1

REPORT INFORMATION
  Report Type: Spontaneous
  Country: US (occurrence: None)
  Receive Date: 20150227
  Receipt Date: 20150227
  Transmission Date: 20150721
  Serious: Yes (Life-Threatening, Other)
  Sender: FDA-Public Use
  Company Number: 15-0002A

PATIENT
  Age: 59 Year
  Sex: Male
  Weight: 90.7 kg

DRUGS (9)
  1. XANAX [Concomitant]
     Active Substance: ALPRAZOLAM
  2. VIIBRYD [Concomitant]
     Active Substance: VILAZODONE HYDROCHLORIDE
  3. ALLERGENIC EXTRACT [Suspect]
     Active Substance: ALLERGENIC EXTRACTS
  4. SINGULAIR [Concomitant]
     Active Substance: MONTELUKAST SODIUM
  5. ALLERGENIC EXTRACT [Suspect]
     Active Substance: ALLERGENIC EXTRACTS
  6. ATORVASTATIN [Concomitant]
     Active Substance: ATORVASTATIN
  7. BUSPAR [Concomitant]
     Active Substance: BUSPIRONE HYDROCHLORIDE
  8. SYNTHROID [Concomitant]
     Active Substance: LEVOTHYROXINE SODIUM
  9. OMEPRAZOLE. [Concomitant]
     Active Substance: OMEPRAZOLE

REACTIONS (3)
  - Pharyngeal oedema [None]
  - Flushing [None]
  - Feeling abnormal [None]

NARRATIVE: CASE EVENT DATE: 20140717
